FAERS Safety Report 9033751 (Version 1)
Quarter: 2013Q1

REPORT INFORMATION
  Report Type: Spontaneous
  Country: US (occurrence: US)
  Receive Date: 20130128
  Receipt Date: 20130128
  Transmission Date: 20140127
  Serious: Yes (Other)
  Sender: FDA-Public Use
  Company Number: US-AMGEN-USASP2012074791

PATIENT
  Age: 55 Year
  Sex: Male
  Weight: 83.9 kg

DRUGS (4)
  1. ENBREL [Suspect]
     Indication: PSORIATIC ARTHROPATHY
     Dosage: 50 MG, QWK
     Route: 058
  2. NORTRIPTYLIN [Concomitant]
     Dosage: 75 MG, UNK
  3. OMEPRAZOLE [Concomitant]
     Dosage: 40 MG, UNK
  4. BYSTOLIC [Concomitant]
     Dosage: 10 MG, UNK

REACTIONS (4)
  - Diarrhoea haemorrhagic [Unknown]
  - Diarrhoea [Unknown]
  - Abdominal pain upper [Unknown]
  - Gastroenteritis viral [Unknown]
